FAERS Safety Report 10204839 (Version 1)
Quarter: 2014Q2

REPORT INFORMATION
  Report Type: Spontaneous
  Country: BR (occurrence: BR)
  Receive Date: 20140529
  Receipt Date: 20140529
  Transmission Date: 20141212
  Serious: Yes (Hospitalization)
  Sender: FDA-Public Use
  Company Number: BR-PFIZER INC-2014144681

PATIENT
  Age: 67 Year
  Sex: Female
  Weight: 70 kg

DRUGS (2)
  1. LYRICA [Suspect]
     Dosage: 1 CAPSULE 4X/DAY
     Route: 048
     Dates: start: 2004, end: 20140521
  2. MICARDIS HCT [Concomitant]
     Indication: HYPERTENSION
     Dosage: 2 TABLETS DAILY
     Dates: start: 2009

REACTIONS (3)
  - Pain [Unknown]
  - Feeling abnormal [Unknown]
  - Herpes virus infection [Unknown]
